FAERS Safety Report 14847705 (Version 1)
Quarter: 2018Q2

REPORT INFORMATION
  Report Type: Spontaneous
  Country: US (occurrence: US)
  Receive Date: 20180504
  Receipt Date: 20180504
  Transmission Date: 20180711
  Serious: No
  Sender: FDA-Public Use
  Company Number: US-BAYER-2018-080636

PATIENT
  Age: 78 Year
  Sex: Female

DRUGS (1)
  1. BETASERON [Suspect]
     Active Substance: INTERFERON BETA-1B
     Indication: MULTIPLE SCLEROSIS
     Dosage: 250 ?G, QOD
     Dates: start: 2008

REACTIONS (5)
  - Dermatitis [None]
  - Herpes zoster [None]
  - Herpes zoster [None]
  - Pain [Recovered/Resolved]
  - Pruritus [None]

NARRATIVE: CASE EVENT DATE: 201708
